FAERS Safety Report 10597962 (Version 2)
Quarter: 2014Q4

REPORT INFORMATION
  Report Type: Spontaneous
  Country: DE (occurrence: DE)
  Receive Date: 20141121
  Receipt Date: 20141201
  Transmission Date: 20150529
  Serious: Yes (Death, Other)
  Sender: FDA-Public Use
  Company Number: DE-PFIZER INC-2014319884

PATIENT
  Sex: Female

DRUGS (3)
  1. MORPHINE SULFATE. [Suspect]
     Active Substance: MORPHINE SULFATE
     Indication: PALLIATIVE CARE
     Dosage: 0.5 ML, HS
     Route: 042
     Dates: start: 20120430, end: 20120501
  2. MORPHINE SULFATE. [Interacting]
     Active Substance: MORPHINE SULFATE
     Dosage: 0.3 ML, HS
     Route: 042
     Dates: start: 20120501, end: 20120909
  3. HALOPERIDOL. [Interacting]
     Active Substance: HALOPERIDOL
     Indication: PALLIATIVE CARE
     Dosage: UNK
     Route: 042
     Dates: start: 20120430, end: 20120507

REACTIONS (4)
  - Sudden death [Fatal]
  - Somnolence [Unknown]
  - Bradycardia [Unknown]
  - Drug interaction [Unknown]

NARRATIVE: CASE EVENT DATE: 201205
